FAERS Safety Report 4292637-8 (Version None)
Quarter: 2004Q1

REPORT INFORMATION
  Report Type: 
  Country: None (occurrence: None)
  Receive Date: 20040211
  Receipt Date: 20040129
  Transmission Date: 20041129
  Serious: Yes (Other)
  Sender: FDA-Public Use
  Company Number: PHBS2004CA01502

PATIENT
  Sex: Male

DRUGS (1)
  1. DIOVAN [Suspect]
     Dosage: 160 MG, BID
     Route: 048
     Dates: start: 20030901, end: 20030901

REACTIONS (7)
  - DRY SKIN [None]
  - ECZEMA ASTEATOTIC [None]
  - SKIN BLEEDING [None]
  - SKIN DESQUAMATION [None]
  - SKIN LESION [None]
  - SKIN REACTION [None]
  - URTICARIA [None]
